FAERS Safety Report 6758685-0 (Version None)
Quarter: 2010Q2

REPORT INFORMATION
  Report Type: 
  Country: None (occurrence: None)
  Receive Date: 20100602
  Receipt Date: 20100526
  Transmission Date: 20101027
  Serious: Yes (Life-Threatening, Hospitalization)
  Sender: FDA-Public Use
  Company Number: IDR-00377

PATIENT
  Age: 42 Year
  Sex: Male

DRUGS (4)
  1. INDERAL LA [Suspect]
     Indication: ARRHYTHMIA
  2. INSULIN [Concomitant]
  3. PROZAC [Concomitant]
  4. PREDNISONE [Concomitant]

REACTIONS (4)
  - COMA [None]
  - DELAYED RECOVERY FROM ANAESTHESIA [None]
  - LIP AND/OR ORAL CAVITY CANCER STAGE IV [None]
  - RESPIRATORY DISTRESS [None]
